FAERS Safety Report 4371339-3 (Version None)
Quarter: 2004Q2

REPORT INFORMATION
  Report Type: 
  Country: None (occurrence: None)
  Receive Date: 20040603
  Receipt Date: 20040518
  Transmission Date: 20050107
  Serious: Yes (Death, Hospitalization)
  Sender: FDA-Public Use
  Company Number: HQWYE616627APR04

PATIENT
  Age: 57 Year
  Sex: Female
  Weight: 136.2 kg

DRUGS (4)
  1. PREMARIN [Suspect]
     Dosage: 0.9 MG DAILY, ORAL
     Route: 048
     Dates: start: 20020108, end: 20020315
  2. CELEBREX [Suspect]
     Dosage: 200 MG TWICE DAILY
     Dates: start: 20020108
  3. NORCO [Suspect]
     Indication: POLYNEUROPATHY
     Dosage: 10/325, 2 TABLETS EVERY FOUR HOURS
     Dates: start: 20020108, end: 20020301
  4. OXYCONTIN [Suspect]
     Dosage: 200 MG TWICE DAILY
     Dates: start: 20020108

REACTIONS (8)
  - CONFUSIONAL STATE [None]
  - HAEMORRHAGE [None]
  - HEART RATE INCREASED [None]
  - INFLAMMATION [None]
  - PAIN [None]
  - PANCREATITIS [None]
  - PEPTIC ULCER [None]
  - SHOCK [None]
